FAERS Safety Report 9233044 (Version 1)
Quarter: 2013Q2

REPORT INFORMATION
  Report Type: Spontaneous
  Country: US (occurrence: None)
  Receive Date: 20130415
  Receipt Date: 20130415
  Transmission Date: 20140414
  Serious: No
  Sender: FDA-Public Use
  Company Number: None

PATIENT
  Sex: Male

DRUGS (1)
  1. SYLATRON [Suspect]
     Dates: start: 20130123, end: 20130326

REACTIONS (4)
  - Dry mouth [None]
  - Oropharyngeal pain [None]
  - Asthenia [None]
  - Decreased appetite [None]
